FAERS Safety Report 7432483-7 (Version None)
Quarter: 2011Q2

REPORT INFORMATION
  Report Type: 
  Country: None (occurrence: None)
  Receive Date: 20110422
  Receipt Date: 20110414
  Transmission Date: 20111010
  Serious: Yes (Hospitalization, Other)
  Sender: FDA-Public Use
  Company Number: US-JNJFOC-20110407366

PATIENT
  Age: 11 Year
  Sex: Female
  Weight: 43.09 kg

DRUGS (6)
  1. BENADRYL [Suspect]
     Indication: OROPHARYNGEAL PAIN
     Route: 065
  2. ZOLOFT [Suspect]
     Indication: ANXIETY
     Route: 065
  3. ADDERALL XR 10 [Concomitant]
     Indication: ATTENTION DEFICIT/HYPERACTIVITY DISORDER
     Route: 050
  4. BENADRYL [Suspect]
     Route: 042
  5. BENADRYL [Suspect]
     Indication: PRODUCT USED FOR UNKNOWN INDICATION
     Route: 042
  6. BENADRYL [Suspect]
     Route: 065

REACTIONS (2)
  - CONVULSION [None]
  - OFF LABEL USE [None]
